FAERS Safety Report 12678430 (Version 2)
Quarter: 2016Q3

REPORT INFORMATION
  Report Type: Other
  Country: US (occurrence: US)
  Receive Date: 20160823
  Receipt Date: 20160824
  Transmission Date: 20161109
  Serious: No
  Sender: FDA-Public Use
  Company Number: US-JEROME STEVENS PHARMACEUTICALS, INC.-1056689

PATIENT
  Age: 38 Year
  Sex: Female

DRUGS (1)
  1. LEVOTHYROXINE SODIUM. [Suspect]
     Active Substance: LEVOTHYROXINE SODIUM
     Indication: HYPOTHYROIDISM
     Route: 048
     Dates: start: 20160725, end: 20160801

REACTIONS (5)
  - Weight decreased [None]
  - Anxiety [None]
  - Palpitations [None]
  - Paraesthesia [None]
  - Seizure [None]

NARRATIVE: CASE EVENT DATE: 20160730
